FAERS Safety Report 12077088 (Version 9)
Quarter: 2016Q1

REPORT INFORMATION
  Report Type: Spontaneous
  Country: JP (occurrence: JP)
  Receive Date: 20160215
  Receipt Date: 20160314
  Transmission Date: 20160526
  Serious: Yes (Death)
  Sender: FDA-Public Use
  Company Number: PHHY2016JP019146

PATIENT
  Age: 73 Year
  Sex: Female
  Weight: 51.2 kg

DRUGS (5)
  1. VIDAZA [Suspect]
     Active Substance: AZACITIDINE
     Indication: MYELODYSPLASTIC SYNDROME
     Dosage: 100 MG, QD (FOR 3 CYCLES)
     Route: 058
     Dates: start: 20140412, end: 20140705
  2. NEORAL [Suspect]
     Active Substance: CYCLOSPORINE
     Indication: MYELODYSPLASTIC SYNDROME
     Dosage: 250 MG, UNK
     Route: 048
     Dates: start: 20140822, end: 20140922
  3. PREDNISOLONE. [Suspect]
     Active Substance: PREDNISOLONE
     Indication: INFLAMMATION
     Dosage: 60 MG, QD
     Route: 065
     Dates: start: 20140822
  4. METHYLPREDNISOLONE. [Suspect]
     Active Substance: METHYLPREDNISOLONE
     Indication: INFLAMMATION
     Dosage: 1000 MG, QD
     Route: 065
     Dates: start: 20140802, end: 20140807
  5. TOCILIZUMAB [Concomitant]
     Active Substance: TOCILIZUMAB
     Indication: INTERLEUKIN LEVEL INCREASED
     Dosage: 400 MG, UNK
     Route: 065

REACTIONS (5)
  - Product use issue [Recovered/Resolved]
  - Multiple organ dysfunction syndrome [Fatal]
  - Circulatory collapse [Fatal]
  - Therapeutic response decreased [Unknown]
  - General physical health deterioration [Unknown]

NARRATIVE: CASE EVENT DATE: 20140822
